FAERS Safety Report 16208601 (Version 1)
Quarter: 2019Q2

REPORT INFORMATION
  Report Type: Spontaneous
  Country: US (occurrence: US)
  Receive Date: 20190417
  Receipt Date: 20190417
  Transmission Date: 20190711
  Serious: Yes (Hospitalization)
  Sender: FDA-Public Use
  Company Number: US-TARO PHARMACEUTICALS USA.,INC-2019SUN00172

PATIENT
  Age: 72 Year
  Sex: Male

DRUGS (2)
  1. ASPIRIN. [Suspect]
     Active Substance: ASPIRIN
     Indication: BACK PAIN
     Dosage: UNK
     Route: 065
  2. IBUPROFEN. [Suspect]
     Active Substance: IBUPROFEN
     Indication: BACK PAIN
     Dosage: UNK
     Route: 065

REACTIONS (5)
  - Gastric ulcer haemorrhage [Recovering/Resolving]
  - Septic shock [Recovering/Resolving]
  - Shock haemorrhagic [Recovering/Resolving]
  - Leukocytosis [Recovering/Resolving]
  - Intestinal ischaemia [Recovering/Resolving]
